FAERS Safety Report 17054936 (Version 2)
Quarter: 2020Q1

REPORT INFORMATION
  Report Type: Spontaneous
  Country: JP (occurrence: JP)
  Receive Date: 20191120
  Receipt Date: 20200123
  Transmission Date: 20200409
  Serious: Yes (Other)
  Sender: FDA-Public Use
  Company Number: NVSJ2019JP001626

PATIENT
  Age: 51 Year
  Sex: Male

DRUGS (23)
  1. REVOLADE TAB [Suspect]
     Active Substance: ELTROMBOPAG
     Dosage: UNK
     Route: 065
  2. REVOLADE TAB [Suspect]
     Active Substance: ELTROMBOPAG
     Dosage: UNK
     Route: 065
  3. REBAMIPIDE [Concomitant]
     Active Substance: REBAMIPIDE
     Indication: INTERVERTEBRAL DISC PROTRUSION
     Dosage: UNK
     Route: 065
  4. RED BLOOD CELLS [Concomitant]
     Active Substance: HUMAN RED BLOOD CELL
     Indication: RED BLOOD CELL COUNT DECREASED
     Dosage: UNK
     Route: 065
  5. ROMIPLATE [Concomitant]
     Active Substance: ROMIPLOSTIM
     Indication: PRODUCT USED FOR UNKNOWN INDICATION
     Dosage: UNK
     Route: 065
  6. REVOLADE TAB [Suspect]
     Active Substance: ELTROMBOPAG
     Indication: APLASTIC ANAEMIA
     Dosage: 75 MG
     Route: 065
  7. NEORAL [Suspect]
     Active Substance: CYCLOSPORINE
     Dosage: UNK
     Route: 065
  8. ANTITHYMOCYTE IMMUNOGLOBULIN (RABBIT) [Suspect]
     Active Substance: LAPINE T-LYMPHOCYTE IMMUNE GLOBULIN
     Indication: APLASTIC ANAEMIA
     Dosage: UNK
     Route: 065
  9. LOXOPROFEN [Concomitant]
     Active Substance: LOXOPROFEN
     Indication: INTERVERTEBRAL DISC PROTRUSION
     Route: 065
  10. PLATELETS [Concomitant]
     Active Substance: HUMAN PLATELET, ALLOGENIC
     Indication: PLATELET COUNT DECREASED
     Dosage: UNK
     Route: 065
  11. REVOLADE TAB [Suspect]
     Active Substance: ELTROMBOPAG
     Dosage: UNK
     Route: 065
  12. NEORAL [Suspect]
     Active Substance: CYCLOSPORINE
     Dosage: UNK
     Route: 065
  13. PREGABALIN. [Concomitant]
     Active Substance: PREGABALIN
     Indication: INTERVERTEBRAL DISC PROTRUSION
     Dosage: UNK
     Route: 065
  14. METENOLONE [Concomitant]
     Active Substance: METHENOLONE ENANTHATE
     Indication: PRODUCT USED FOR UNKNOWN INDICATION
     Dosage: UNK
     Route: 065
  15. REVOLADE TAB [Suspect]
     Active Substance: ELTROMBOPAG
     Dosage: UNK
     Route: 065
  16. REVOLADE TAB [Suspect]
     Active Substance: ELTROMBOPAG
     Dosage: UNK
     Route: 065
  17. REVOLADE TAB [Suspect]
     Active Substance: ELTROMBOPAG
     Dosage: UNK
     Route: 065
  18. NEORAL [Suspect]
     Active Substance: CYCLOSPORINE
     Indication: APLASTIC ANAEMIA
     Dosage: UNK
     Route: 065
  19. NEORAL [Suspect]
     Active Substance: CYCLOSPORINE
     Dosage: UNK
     Route: 065
  20. NEORAL [Suspect]
     Active Substance: CYCLOSPORINE
     Dosage: UNK
     Route: 065
  21. TRAMADOL. [Concomitant]
     Active Substance: TRAMADOL
     Indication: INTERVERTEBRAL DISC PROTRUSION
     Dosage: UNK
     Route: 065
  22. REVOLADE TAB [Suspect]
     Active Substance: ELTROMBOPAG
     Dosage: 100 MG
     Route: 065
  23. NEORAL [Suspect]
     Active Substance: CYCLOSPORINE
     Dosage: UNK
     Route: 065

REACTIONS (6)
  - Renal disorder [Recovered/Resolved]
  - Disease progression [Unknown]
  - Aplastic anaemia [Unknown]
  - Liver disorder [Recovered/Resolved]
  - Drug ineffective [Unknown]
  - Neutropenia [Recovered/Resolved]
